FAERS Safety Report 22974845 (Version 2)
Quarter: 2025Q1

REPORT INFORMATION
  Report Type: Report from Study
  Country: GB (occurrence: GB)
  Receive Date: 20230923
  Receipt Date: 20250117
  Transmission Date: 20250408
  Serious: Yes (Other)
  Sender: TAKEDA
  Company Number: GB-TAKEDA-2023TUS062857

PATIENT
  Sex: Female

DRUGS (2)
  1. VEDOLIZUMAB [Suspect]
     Active Substance: VEDOLIZUMAB
     Indication: Colitis ulcerative
     Dosage: 108 MILLIGRAM, Q2WEEKS
  2. VEDOLIZUMAB [Suspect]
     Active Substance: VEDOLIZUMAB

REACTIONS (10)
  - Lower respiratory tract infection [Unknown]
  - Abscess [Unknown]
  - Skin striae [Unknown]
  - Myalgia [Unknown]
  - Influenza like illness [Unknown]
  - Diarrhoea [Unknown]
  - Vulvovaginal candidiasis [Unknown]
  - Arthralgia [Unknown]
  - Pain in extremity [Unknown]
  - Nausea [Unknown]
